FAERS Safety Report 7197975-7 (Version None)
Quarter: 2010Q4

REPORT INFORMATION
  Report Type: 
  Country: None (occurrence: None)
  Receive Date: 20101227
  Receipt Date: 20101216
  Transmission Date: 20110411
  Serious: Yes (Other)
  Sender: FDA-Public Use
  Company Number: ES-ROCHE-748886

PATIENT
  Age: 53 Year
  Sex: Female

DRUGS (4)
  1. AVASTIN [Suspect]
     Route: 042
     Dates: start: 20091014, end: 20100512
  2. FLUOROURACIL [Suspect]
     Route: 042
     Dates: start: 20090812, end: 20100512
  3. FOLINATO DI CALCICO [Suspect]
     Dosage: DRUG: FOLINATO CALCICO
     Route: 042
     Dates: start: 20090812, end: 20100512
  4. IRINOTECAN HYDROCHLORIDE [Suspect]
     Dosage: DRUG: IRINOTECAN HYDROCHLORIDE TRIHYDRATE
     Route: 042
     Dates: start: 20090812, end: 20100512

REACTIONS (1)
  - DYSTONIA [None]
